FAERS Safety Report 23520136 (Version 1)
Quarter: 2024Q1

REPORT INFORMATION
  Report Type: Spontaneous
  Country: US (occurrence: US)
  Receive Date: 20240214
  Receipt Date: 20240214
  Transmission Date: 20240409
  Serious: Yes (Hospitalization)
  Sender: FDA-Public Use
  Company Number: US-AVET LIFESCIENCES LTD-2024-AVET-000030

PATIENT
  Age: 17 Year
  Sex: Female

DRUGS (2)
  1. METHIMAZOLE [Suspect]
     Active Substance: METHIMAZOLE
     Indication: Graves^ disease
     Dosage: 15 MILLIGRAM, 2 DOSE PER 1D (0.54 MG/KG/DAY)
     Route: 065
  2. ATENOLOL [Concomitant]
     Active Substance: ATENOLOL
     Indication: Product used for unknown indication
     Dosage: 25 MILLIGRAM, 1 DOSE PER 1D
     Route: 065

REACTIONS (3)
  - Agranulocytosis [Unknown]
  - Septic shock [Unknown]
  - Pharyngitis [Unknown]
